FAERS Safety Report 6642668-5 (Version None)
Quarter: 2010Q1

REPORT INFORMATION
  Report Type: 
  Country: None (occurrence: None)
  Receive Date: 20100319
  Receipt Date: 20100315
  Transmission Date: 20100710
  Serious: Yes (Life-Threatening, Hospitalization)
  Sender: FDA-Public Use
  Company Number: FR-ASTRAZENECA-2010SE11054

PATIENT
  Age: 27152 Day
  Sex: Male

DRUGS (10)
  1. NAROPIN [Suspect]
     Dates: start: 20091223
  2. ZESTORETIC [Concomitant]
     Dosage: 20+12.5 MG DAILY
     Route: 048
     Dates: end: 20091206
  3. AMLOR [Concomitant]
     Route: 048
  4. BISOPROLOL [Concomitant]
     Route: 048
  5. ASPEGIC 1000 [Concomitant]
     Route: 048
  6. TAHOR [Concomitant]
     Route: 048
     Dates: start: 20091201
  7. DAFLON [Concomitant]
  8. DIFFU-K [Concomitant]
  9. ZOLPIDEM [Concomitant]
  10. MAG 2 [Concomitant]

REACTIONS (2)
  - ANAPHYLACTIC SHOCK [None]
  - SKIN TEST POSITIVE [None]
